FAERS Safety Report 16472155 (Version 1)
Quarter: 2019Q2

REPORT INFORMATION
  Report Type: Spontaneous
  Country: FR (occurrence: FR)
  Receive Date: 20190625
  Receipt Date: 20190625
  Transmission Date: 20190711
  Serious: Yes (Hospitalization, Other)
  Sender: FDA-Public Use
  Company Number: FR-AUROBINDO-AUR-APL-2019-035565

PATIENT

DRUGS (11)
  1. DEXCHLORPHENIRAMINE MALEATE. [Concomitant]
     Active Substance: DEXCHLORPHENIRAMINE MALEATE
     Indication: PREMEDICATION
     Dosage: 5 MILLIGRAM, CYCLICAL
     Route: 042
     Dates: start: 20190325
  2. CALCIUM FOLINATE [Concomitant]
     Active Substance: LEUCOVORIN CALCIUM
     Indication: PROPHYLAXIS
     Dosage: 1 DOSAGE FORM, EVERY OTHER DAY
     Route: 048
     Dates: start: 20190407
  3. TINZAPARIN SODIUM [Concomitant]
     Active Substance: TINZAPARIN SODIUM
     Indication: THROMBOSIS PROPHYLAXIS
     Dosage: 12000 INTERNATIONAL UNIT, DAILY
     Route: 058
     Dates: end: 20190416
  4. RITUXIMAB. [Concomitant]
     Active Substance: RITUXIMAB
     Indication: WALDENSTROM^S MACROGLOBULINAEMIA
     Dosage: 650 MILLIGRAM
     Route: 041
     Dates: start: 20190325
  5. VALACICLOVIR [Suspect]
     Active Substance: VALACYCLOVIR HYDROCHLORIDE
     Indication: OPPORTUNISTIC INFECTION PROPHYLAXIS
     Dosage: 1000 MILLIGRAM, DAILY
     Route: 048
     Dates: start: 20190403, end: 20190408
  6. PARACETAMOL [Concomitant]
     Active Substance: ACETAMINOPHEN
     Indication: PRODUCT USED FOR UNKNOWN INDICATION
     Dosage: 1 GRAM, CYCLICAL
     Route: 042
     Dates: start: 20190325
  7. PREDNISONE. [Concomitant]
     Active Substance: PREDNISONE
     Indication: PREMEDICATION
     Dosage: 70 MILLIGRAM, CYCLICAL
     Route: 048
     Dates: start: 20190325
  8. CYTARABINE. [Concomitant]
     Active Substance: CYTARABINE
     Indication: WALDENSTROM^S MACROGLOBULINAEMIA
     Dosage: 40 MILLIGRAM
     Route: 037
     Dates: start: 20190401
  9. METHOTREXATE. [Concomitant]
     Active Substance: METHOTREXATE
     Indication: WALDENSTROM^S MACROGLOBULINAEMIA
     Dosage: 15 MILLIGRAM
     Route: 037
     Dates: start: 20190401
  10. METHYLPREDNISOLONE. [Concomitant]
     Active Substance: METHYLPREDNISOLONE
     Indication: WALDENSTROM^S MACROGLOBULINAEMIA
     Dosage: 20 MILLIGRAM, CYCLICAL
     Route: 039
     Dates: start: 20190325
  11. BACTRIM [Suspect]
     Active Substance: SULFAMETHOXAZOLE\TRIMETHOPRIM
     Indication: OPPORTUNISTIC INFECTION PROPHYLAXIS
     Dosage: 3 DOSAGE FORM, EVERY WEEK
     Route: 048
     Dates: start: 20190403, end: 20190408

REACTIONS (1)
  - Pancytopenia [Recovered/Resolved]

NARRATIVE: CASE EVENT DATE: 20190408
